FAERS Safety Report 7002454-3 (Version None)
Quarter: 2010Q3

REPORT INFORMATION
  Report Type: 
  Country: None (occurrence: None)
  Receive Date: 20100920
  Receipt Date: 20100914
  Transmission Date: 20110219
  Serious: Yes (Hospitalization)
  Sender: FDA-Public Use
  Company Number: FR-BRISTOL-MYERS SQUIBB COMPANY-15288988

PATIENT
  Age: 61 Year
  Sex: Male

DRUGS (5)
  1. ELISOR TABS [Suspect]
     Dosage: 1DF:1 TAB ELISOR 40MG; TAKEN FOR SEVERAL YEARS
     Route: 048
  2. ADANCOR [Suspect]
     Dosage: 2DF:2 TABS ADANCOR 20MG
     Route: 048
     Dates: start: 20060901
  3. FORTZAAR [Suspect]
     Dosage: 1DF:1 FILM-COATED TABLET 100 MG/12.5 MG
     Route: 048
     Dates: start: 20080101
  4. DILTIAZEM [Suspect]
     Dosage: 1DF: 1 EXTENDED-RELEASE CAPSULE   TAKEN FOR SEVERAL YEARS MONOTILDIEM SR 300 MG
     Route: 048
  5. PLAVIX [Suspect]
     Dosage: 1DF:1 FILM-COATED TABLET  PLAVIX 75 MG
     Route: 048
     Dates: start: 20060901

REACTIONS (1)
  - SKIN ULCER [None]
